FAERS Safety Report 8545044-3 (Version None)
Quarter: 2012Q3

REPORT INFORMATION
  Report Type: 
  Country: None (occurrence: None)
  Receive Date: 20120727
  Receipt Date: 20120719
  Transmission Date: 20120928
  Serious: Yes (Life-Threatening, Hospitalization, Other)
  Sender: FDA-Public Use
  Company Number: GB-BAYER-2012-072143

PATIENT
  Sex: Female

DRUGS (1)
  1. NEXAVAR [Suspect]

REACTIONS (2)
  - CHEST X-RAY ABNORMAL [None]
  - RESPIRATORY DISORDER [None]
